FAERS Safety Report 6607684-8 (Version None)
Quarter: 2010Q1

REPORT INFORMATION
  Report Type: 
  Country: None (occurrence: None)
  Receive Date: 20100301
  Receipt Date: 20100217
  Transmission Date: 20100710
  Serious: Yes (Other)
  Sender: FDA-Public Use
  Company Number: US-ELI_LILLY_AND_COMPANY-US201002005195

PATIENT
  Sex: Female

DRUGS (22)
  1. CYMBALTA [Suspect]
     Indication: FIBROMYALGIA
     Dosage: 20 MG, DAILY (1/D)
     Dates: start: 20091007, end: 20091029
  2. CYMBALTA [Suspect]
     Dosage: 40 MG, DAILY (1/D)
     Dates: start: 20091029, end: 20091202
  3. SYNTHROID [Concomitant]
  4. LISINOPRIL [Concomitant]
  5. HYDROCHLOROTHIAZIDE [Concomitant]
  6. AMITRIPTYLINE HCL [Concomitant]
  7. GLUCOSAMINE [Concomitant]
  8. LAMICTAL [Concomitant]
  9. ATENOLOL [Concomitant]
  10. CITRACAL [Concomitant]
  11. VITAMIN B-12 [Concomitant]
  12. VITAMIN D [Concomitant]
  13. DIPHENOXYLATE [Concomitant]
  14. COLESTYRAMIN [Concomitant]
  15. BENEFIBER [Concomitant]
  16. MIRALAX [Concomitant]
  17. BENADRYL [Concomitant]
  18. ZYRTEC [Concomitant]
  19. MAALOX [Concomitant]
  20. LIDOCAINE VISCOUS /00033402/ [Concomitant]
  21. PROBIOTICA /USA/ [Concomitant]
  22. STOOL SOFTENER [Concomitant]

REACTIONS (43)
  - ABDOMINAL PAIN UPPER [None]
  - AFFECT LABILITY [None]
  - AGITATION [None]
  - ALOPECIA [None]
  - ASTHENIA [None]
  - CHILLS [None]
  - CONFUSIONAL STATE [None]
  - CONSTIPATION [None]
  - CONTUSION [None]
  - CRYING [None]
  - DECREASED APPETITE [None]
  - DIARRHOEA [None]
  - DISORIENTATION [None]
  - DIZZINESS [None]
  - DRUG WITHDRAWAL SYNDROME [None]
  - DRY EYE [None]
  - DRY SKIN [None]
  - ERYTHEMA [None]
  - FATIGUE [None]
  - FEELING ABNORMAL [None]
  - FRUSTRATION [None]
  - GASTROINTESTINAL SOUNDS ABNORMAL [None]
  - HEADACHE [None]
  - HOT FLUSH [None]
  - HYPERAESTHESIA [None]
  - INCREASED APPETITE [None]
  - INSOMNIA [None]
  - IRRITABILITY [None]
  - MANIA [None]
  - MEMORY IMPAIRMENT [None]
  - MIGRAINE [None]
  - MOUTH ULCERATION [None]
  - MUSCLE SPASMS [None]
  - MYALGIA [None]
  - NAUSEA [None]
  - NIGHT SWEATS [None]
  - PALPITATIONS [None]
  - PRURITUS [None]
  - SKIN BURNING SENSATION [None]
  - SKIN IRRITATION [None]
  - VERTIGO [None]
  - VISION BLURRED [None]
  - WEIGHT DECREASED [None]
